FAERS Safety Report 12720220 (Version 1)
Quarter: 2016Q3

REPORT INFORMATION
  Report Type: Spontaneous
  Country: US (occurrence: US)
  Receive Date: 20160907
  Receipt Date: 20160907
  Transmission Date: 20161109
  Serious: Yes (Disabling)
  Sender: FDA-Public Use
  Company Number: None

PATIENT
  Age: 6 Year
  Sex: Male
  Weight: 28.35 kg

DRUGS (4)
  1. NITROUS OXIDE. [Suspect]
     Active Substance: NITROUS OXIDE
     Indication: SEDATION
     Route: 055
  2. NASONEX [Concomitant]
     Active Substance: MOMETASONE FUROATE
  3. CLARITIN [Concomitant]
     Active Substance: LORATADINE
  4. PROBIOTIC [Concomitant]
     Active Substance: PROBIOTICS NOS

REACTIONS (3)
  - Micturition urgency [None]
  - Urinary incontinence [None]
  - Pollakiuria [None]

NARRATIVE: CASE EVENT DATE: 20160831
